FAERS Safety Report 20584170 (Version 1)
Quarter: 2022Q1

REPORT INFORMATION
  Report Type: Spontaneous
  Country: US (occurrence: US)
  Receive Date: 20220311
  Receipt Date: 20220311
  Transmission Date: 20220423
  Serious: Yes (Hospitalization)
  Sender: FDA-Public Use
  Company Number: US-MYLANLABS-2022M1018819

PATIENT
  Age: 3 Week
  Sex: Female

DRUGS (2)
  1. PROPRANOLOL [Suspect]
     Active Substance: PROPRANOLOL HYDROCHLORIDE
     Indication: Infantile haemangioma
     Dosage: 0.66 MILLIGRAM/KILOGRAM, IT WAS TITRATED UP EVERY 6 HOURS TO A GOAL DOSE?.
     Route: 065
  2. PROPRANOLOL [Suspect]
     Active Substance: PROPRANOLOL HYDROCHLORIDE
     Indication: Ulcerated haemangioma
     Dosage: 3 MILLIGRAM/KILOGRAM, QD
     Route: 065

REACTIONS (5)
  - Ulcerated haemangioma [Recovered/Resolved]
  - Infantile haemangioma [Recovered/Resolved]
  - Condition aggravated [Recovered/Resolved]
  - Paradoxical drug reaction [Recovered/Resolved]
  - Off label use [Unknown]
